FAERS Safety Report 12655729 (Version 5)
Quarter: 2016Q4

REPORT INFORMATION
  Report Type: Spontaneous
  Country: US (occurrence: US)
  Receive Date: 20160816
  Receipt Date: 20161118
  Transmission Date: 20170207
  Serious: Yes (Hospitalization, Other)
  Sender: FDA-Public Use
  Company Number: US-PFIZER INC-2016381911

PATIENT
  Age: 83 Year
  Sex: Male

DRUGS (2)
  1. LYRICA [Suspect]
     Active Substance: PREGABALIN
     Dosage: UNK
  2. ROPIVACAINE [Concomitant]
     Active Substance: ROPIVACAINE
     Indication: TESTICULAR PAIN
     Dosage: UNK

REACTIONS (3)
  - Amputation stump pain [Unknown]
  - Blindness [Unknown]
  - Blood pressure abnormal [Unknown]
